FAERS Safety Report 8750691 (Version 3)
Quarter: 2012Q4

REPORT INFORMATION
  Report Type: Spontaneous
  Country: GB (occurrence: None)
  Receive Date: 20120810
  Receipt Date: 20120910
  Transmission Date: 20130627
  Serious: Yes (Other)
  Sender: FDA-Public Use
  Company Number: AUR-APL-2012-03339

PATIENT
  Age: 39 Year
  Sex: Male
  Weight: 80.6 kg

DRUGS (2)
  1. CITALOPRAM HYDROBROMIDE [Suspect]
     Indication: PRODUCT USED FOR UNKNOWN INDICATION
  2. ZOCOR (SIMVASTATIN) [Suspect]
     Indication: LIPIDS
     Route: 048
     Dates: start: 20120602, end: 20120622

REACTIONS (2)
  - Drug interaction [None]
  - Feeling abnormal [None]
